FAERS Safety Report 15444274 (Version 3)
Quarter: 2018Q4

REPORT INFORMATION
  Report Type: Spontaneous
  Country: CA (occurrence: CA)
  Receive Date: 20180928
  Receipt Date: 20181015
  Transmission Date: 20190204
  Serious: Yes (Life-Threatening, Hospitalization, Other)
  Sender: FDA-Public Use
  Company Number: CA-PFIZER INC-2018388662

PATIENT
  Age: 39 Year
  Sex: Male

DRUGS (8)
  1. OXYCODONE [Concomitant]
     Active Substance: OXYCODONE
     Dosage: 45 MG, 3X/DAY, (OXYCODONE IR)
     Route: 048
  2. TESTOSTERONE DECANOATE [Suspect]
     Active Substance: TESTOSTERONE DECANOATE
     Dosage: 200 MG, WEEKLY
     Route: 030
  3. CYANOCOBALAMIN. [Concomitant]
     Active Substance: CYANOCOBALAMIN
     Dosage: 250 MG, WEEKLY
     Route: 030
  4. INSULIN GLARGINE [Concomitant]
     Active Substance: INSULIN GLARGINE
     Dosage: UNK, (100U SC QHS)
     Route: 058
  5. BOLDENONE UNDECYLENATE [Suspect]
     Active Substance: BOLDENONE UNDECYLENATE
     Dosage: 250 MG, WEEKLY
     Route: 030
  6. TESTOSTERONE ENANTHATE. [Suspect]
     Active Substance: TESTOSTERONE ENANTHATE
     Dosage: 100 MG, WEEKLY
     Route: 030
  7. MARIJUANA [Concomitant]
     Active Substance: CANNABIS SATIVA SUBSP. INDICA TOP
     Dosage: 1 G, DAILY
     Route: 055
  8. TESTOSTERONE CIPIONATE [Suspect]
     Active Substance: TESTOSTERONE
     Dosage: 100 MG, WEEKLY
     Route: 030

REACTIONS (2)
  - Congestive cardiomyopathy [Recovered/Resolved]
  - Cardiac failure acute [Recovered/Resolved]
